FAERS Safety Report 10512300 (Version 2)
Quarter: 2014Q4

REPORT INFORMATION
  Report Type: Spontaneous
  Country: FR (occurrence: FR)
  Receive Date: 20141010
  Receipt Date: 20141205
  Transmission Date: 20150528
  Serious: Yes (Life-Threatening, Other)
  Sender: FDA-Public Use
  Company Number: FR-ASTRAZENECA-2014SE74695

PATIENT
  Age: 1019 Month
  Sex: Female

DRUGS (11)
  1. APROVEL [Suspect]
     Active Substance: IRBESARTAN
     Route: 048
     Dates: start: 20140908
  2. LERCANIDIPINE [Suspect]
     Active Substance: LERCANIDIPINE
     Route: 048
     Dates: start: 20140908
  3. GAVISCON [Concomitant]
     Active Substance: ALUMINUM HYDROXIDE\MAGNESIUM CARBONATE
     Route: 048
  4. BROMAZEPAM [Suspect]
     Active Substance: BROMAZEPAM
     Route: 048
  5. PREVISCAN [Suspect]
     Active Substance: FLUINDIONE
     Dosage: 15 MG OR 20 MG EOD
     Route: 048
  6. LASILIX [Concomitant]
     Active Substance: FUROSEMIDE
     Route: 048
  7. CRESTOR [Suspect]
     Active Substance: ROSUVASTATIN CALCIUM
     Route: 048
     Dates: start: 20140908
  8. AMIODARONE [Suspect]
     Active Substance: AMIODARONE
     Route: 048
     Dates: start: 20140908
  9. PREVISCAN [Suspect]
     Active Substance: FLUINDIONE
     Dosage: 15 MG OR 20 MG EOD
     Route: 048
     Dates: start: 20140908
  10. LACTULOSE. [Suspect]
     Active Substance: LACTULOSE
     Route: 048
  11. METEOSPASMYL [Suspect]
     Active Substance: ALVERINE CITRATE\DIMETHICONE
     Route: 048

REACTIONS (7)
  - Presyncope [Unknown]
  - Hyperkalaemia [Unknown]
  - Aspartate aminotransferase increased [Unknown]
  - Interstitial lung disease [Recovered/Resolved]
  - International normalised ratio increased [Unknown]
  - Renal failure [Unknown]
  - Alanine aminotransferase increased [Unknown]

NARRATIVE: CASE EVENT DATE: 201409
